FAERS Safety Report 10090389 (Version 2)
Quarter: 2014Q2

REPORT INFORMATION
  Report Type: Spontaneous
  Country: FR (occurrence: FR)
  Receive Date: 20140421
  Receipt Date: 20140502
  Transmission Date: 20141212
  Serious: Yes (Hospitalization, Other)
  Sender: FDA-Public Use
  Company Number: FR-ACTAVIS-2014-08203

PATIENT
  Age: 26 Year
  Sex: Male
  Weight: 75 kg

DRUGS (1)
  1. TRAMADOL ARROW [Suspect]
     Indication: ABDOMINAL PAIN
     Dosage: 1 G, TOTAL
     Route: 048
     Dates: start: 20140313, end: 20140313

REACTIONS (4)
  - Somnolence [Recovered/Resolved]
  - Incorrect drug administration rate [Recovered/Resolved]
  - Incorrect dose administered [Recovered/Resolved]
  - Medication error [Recovered/Resolved]
